FAERS Safety Report 8239924-6 (Version None)
Quarter: 2012Q1

REPORT INFORMATION
  Report Type: 
  Country: None (occurrence: None)
  Receive Date: 20120309
  Receipt Date: 20100419
  Transmission Date: 20120608
  Serious: Yes (Other)
  Sender: FDA-Public Use
  Company Number: PHHY2010US07954

PATIENT
  Age: 37 Year
  Sex: Female

DRUGS (5)
  1. HYDROCHLORIC ACID (HYDROCHLORIC ACID) [Concomitant]
  2. EXTAVIA [Suspect]
     Indication: MULTIPLE SCLEROSIS
     Dosage: 0.25 MG, QOD, SUBCUTANEOUS ; 0.125 MG, QOD, SUBCUTANEOUS
     Route: 058
     Dates: start: 20100224
  3. EXTAVIA [Suspect]
     Indication: MULTIPLE SCLEROSIS
     Dosage: 0.25 MG, QOD, SUBCUTANEOUS ; 0.125 MG, QOD, SUBCUTANEOUS
     Route: 058
     Dates: start: 20100206
  4. METHYLDOPA [Concomitant]
  5. POTASSIUM CHLORIDE [Concomitant]

REACTIONS (12)
  - INJECTION SITE PAIN [None]
  - CRYING [None]
  - FATIGUE [None]
  - IRRITABILITY [None]
  - INJECTION SITE HAEMATOMA [None]
  - INJECTION SITE PRURITUS [None]
  - DECREASED INTEREST [None]
  - DEPRESSION [None]
  - INJECTION SITE SWELLING [None]
  - INJECTION SITE ERYTHEMA [None]
  - SOCIAL AVOIDANT BEHAVIOUR [None]
  - FEELING ABNORMAL [None]
